FAERS Safety Report 17487665 (Version 2)
Quarter: 2020Q1

REPORT INFORMATION
  Report Type: Spontaneous
  Country: JP (occurrence: JP)
  Receive Date: 20200303
  Receipt Date: 20200309
  Transmission Date: 20200409
  Serious: Yes (Other)
  Sender: FDA-Public Use
  Company Number: JP-PFIZER INC-2020089768

PATIENT
  Age: 28 Year
  Sex: Female

DRUGS (4)
  1. BROTIZOLAM [Concomitant]
     Active Substance: BROTIZOLAM
     Dosage: 0.25 MG, DAILY
  2. MEILAX [Concomitant]
     Active Substance: ETHYL LOFLAZEPATE
     Dosage: 1 MG, DAILY
  3. EFFEXOR [Suspect]
     Active Substance: VENLAFAXINE HYDROCHLORIDE
     Indication: DEPRESSION
     Dosage: 37.5 MG, DAILY
     Route: 048
  4. EFFEXOR [Suspect]
     Active Substance: VENLAFAXINE HYDROCHLORIDE
     Dosage: 75 MG, DAILY
     Route: 048

REACTIONS (2)
  - Mania [Recovering/Resolving]
  - Bipolar II disorder [Unknown]
